FAERS Safety Report 9129282 (Version 2)
Quarter: 2013Q2

REPORT INFORMATION
  Report Type: Spontaneous
  Country: BR (occurrence: BR)
  Receive Date: 20130125
  Receipt Date: 20130410
  Transmission Date: 20140414
  Serious: Yes (Hospitalization, Disabling)
  Sender: FDA-Public Use
  Company Number: BR-ASTRAZENECA-2013SE04690

PATIENT
  Age: 76 Year
  Sex: Male

DRUGS (1)
  1. ATACAND HCT [Suspect]
     Indication: HYPERTENSION
     Dosage: 16/12.5 MG, 1 TABLET DAILY
     Route: 048
     Dates: start: 2011

REACTIONS (3)
  - Arrhythmia [Recovered/Resolved]
  - Hypothyroidism [Recovered/Resolved]
  - Femur fracture [Not Recovered/Not Resolved]
